FAERS Safety Report 24021602 (Version 1)
Quarter: 2024Q2

REPORT INFORMATION
  Report Type: Report from Study
  Country: CN (occurrence: CN)
  Receive Date: 20240627
  Receipt Date: 20240627
  Transmission Date: 20240716
  Serious: No
  Sender: FDA-Public Use
  Company Number: CN-ROCHE-3576436

PATIENT
  Age: 63 Year
  Sex: Male
  Weight: 63.0 kg

DRUGS (2)
  1. COLUMVI [Suspect]
     Active Substance: GLOFITAMAB-GXBM
     Indication: Diffuse large B-cell lymphoma
     Dosage: THE CYCLE 1: 2.5 MG DAY 8 DOSING, 10 MG DAY 15 DOSING. THE CYCLE 2-12: 30MG. EACH DOSING CYCLE IS 21
     Route: 041
     Dates: start: 20240523
  2. GAZYVA [Suspect]
     Active Substance: OBINUTUZUMAB
     Indication: Diffuse large B-cell lymphoma
     Dosage: THE CYCLE 1: 1000 MG ONCE, INJECTION, 1000 MG/VIAL
     Route: 042
     Dates: start: 20240516, end: 20240516

REACTIONS (2)
  - Rash [Recovering/Resolving]
  - Interleukin level increased [Unknown]

NARRATIVE: CASE EVENT DATE: 20240601
